FAERS Safety Report 5022004-0 (Version None)
Quarter: 2006Q2

REPORT INFORMATION
  Report Type: 
  Country: None (occurrence: None)
  Receive Date: 20060605
  Receipt Date: 20060522
  Transmission Date: 20061013
  Serious: Yes (Other)
  Sender: FDA-Public Use
  Company Number: 2006BH009482

PATIENT
  Sex: 0

DRUGS (2)
  1. BALANCED SALT SOLUTION [Suspect]
     Indication: SURGERY
     Dosage: 500 ML
  2. KENALOG [Suspect]
     Indication: SURGERY

REACTIONS (1)
  - ENDOPHTHALMITIS [None]
